FAERS Safety Report 8587459 (Version 4)
Quarter: 2014Q2

REPORT INFORMATION
  Report Type: Report from Study
  Country: IE (occurrence: IE)
  Receive Date: 20120531
  Receipt Date: 20140515
  Transmission Date: 20141212
  Serious: Yes (Life-Threatening, Hospitalization)
  Sender: FDA-Public Use
  Company Number: IE-TEVA-339414USA

PATIENT
  Age: 66 Year
  Sex: Male
  Weight: 93 kg

DRUGS (27)
  1. TREANDA [Suspect]
     Indication: NON-HODGKIN^S LYMPHOMA
     Route: 042
     Dates: start: 20120202, end: 20120302
  2. RITUXIMAB [Suspect]
     Indication: NON-HODGKIN^S LYMPHOMA
     Route: 042
     Dates: start: 20120202, end: 20120301
  3. VALACICLOVIR HYDROCHLORIDE [Concomitant]
     Indication: ANTIVIRAL PROPHYLAXIS
     Dosage: 500 MILLIGRAM DAILY;
     Dates: start: 20110429
  4. OXYCODONE HYDROCHLORIDE [Concomitant]
     Indication: BACK PAIN
     Route: 048
     Dates: start: 20110323
  5. ESOMEPRAZOLE [Concomitant]
     Indication: DYSPEPSIA
     Dates: start: 20111114
  6. BISOPROLOL FUMARATE [Concomitant]
     Indication: TACHYCARDIA
     Dates: start: 20120301
  7. TAMSULOSIN [Concomitant]
     Indication: LOWER URINARY TRACT SYMPTOMS
     Dates: start: 20110810
  8. LACTULOSE [Concomitant]
     Indication: CONSTIPATION
     Dates: start: 20120323, end: 20120417
  9. CALCIUM CARBONATE [Concomitant]
     Indication: HYPOCALCAEMIA
     Route: 048
     Dates: start: 20120323
  10. FOLIC ACID [Concomitant]
     Indication: PROPHYLAXIS
     Route: 048
     Dates: start: 20120402
  11. PREDNISOLONE [Concomitant]
     Indication: PNEUMONITIS
     Dosage: 100 MILLIGRAM DAILY;
     Route: 048
     Dates: start: 20120328, end: 20120405
  12. ALLOPURINOL [Concomitant]
     Indication: GOUT
     Dates: start: 20091209
  13. LIDOCAINE [Concomitant]
     Indication: BACK PAIN
     Dates: start: 20120323
  14. BACTRIM [Concomitant]
     Indication: PNEUMONITIS
     Route: 048
     Dates: start: 20120328, end: 20120404
  15. PREGABALIN [Concomitant]
     Indication: BACK PAIN
     Dosage: 100 MILLIGRAM DAILY;
     Route: 048
     Dates: start: 20120326, end: 20120403
  16. OXYCODONE HYDROCHLORIDE [Concomitant]
     Indication: BACK PAIN
     Route: 048
     Dates: start: 20120323
  17. HEPARIN-FRACTION, SODIUM SALT [Concomitant]
     Indication: PULMONARY EMBOLISM
     Dates: end: 20120405
  18. IPRATROPIUM BROMIDE [Concomitant]
     Indication: PNEUMONITIS
     Route: 055
     Dates: start: 20120402, end: 20120404
  19. CODEINE LINCTUS [Concomitant]
     Indication: COUGH
     Dosage: 30 ML DAILY;
     Dates: start: 20120326, end: 20120404
  20. SALBUTAMOL [Concomitant]
     Indication: COUGH
     Route: 055
     Dates: start: 20120328, end: 20120328
  21. SODIUM CHLORIDE [Concomitant]
     Route: 055
     Dates: start: 20120328, end: 20120329
  22. DOMPERIDONE [Concomitant]
     Indication: PROPHYLAXIS OF NAUSEA AND VOMITING
     Dosage: 30 MILLIEQUIVALENTS DAILY;
     Dates: start: 20120324, end: 20120401
  23. NULYTELY [Concomitant]
     Indication: CONSTIPATION
     Dates: start: 20120324, end: 20120402
  24. SENNA ALEXANDRINA [Concomitant]
     Indication: CONSTIPATION
     Route: 048
     Dates: start: 20120324
  25. CYCLIZINE [Concomitant]
     Indication: PROPHYLAXIS OF NAUSEA AND VOMITING
     Dosage: 150 MILLIGRAM DAILY;
     Dates: start: 20120401, end: 20120402
  26. PARACETAMOL [Concomitant]
     Indication: BACK PAIN
     Dosage: 4 GRAM DAILY;
     Route: 048
     Dates: start: 20090323
  27. ALPRAZOLAM [Concomitant]
     Indication: TREMOR
     Route: 048
     Dates: start: 20120401, end: 20120401

REACTIONS (1)
  - Pulmonary embolism [Recovered/Resolved]
